FAERS Safety Report 14251717 (Version 2)
Quarter: 2018Q1

REPORT INFORMATION
  Report Type: Not Available
  Country: US (occurrence: US)
  Receive Date: 20171205
  Receipt Date: 20180307
  Transmission Date: 20180508
  Serious: No
  Sender: FDA-Public Use
  Company Number: US-NEUROCRINE BIOSCIENCES INC.-2017NBI01692

PATIENT
  Sex: Male

DRUGS (11)
  1. INGREZZA [Suspect]
     Active Substance: VALBENAZINE
     Indication: TARDIVE DYSKINESIA
     Route: 048
     Dates: start: 20170822, end: 20170829
  2. OMEPRAZOLE. [Concomitant]
     Active Substance: OMEPRAZOLE
  3. AMANTADINE HCL [Concomitant]
     Active Substance: AMANTADINE HYDROCHLORIDE
  4. FLUPHENAZINE HCL [Concomitant]
     Active Substance: FLUPHENAZINE HYDROCHLORIDE
  5. HALDOL [Suspect]
     Active Substance: HALOPERIDOL
     Indication: PRODUCT USED FOR UNKNOWN INDICATION
  6. BUSPIRONE HCL [Concomitant]
     Active Substance: BUSPIRONE HYDROCHLORIDE
  7. DIPHENHYDRAMINE. [Concomitant]
     Active Substance: DIPHENHYDRAMINE
  8. LISINOPRIL. [Concomitant]
     Active Substance: LISINOPRIL
  9. NIFEDIPINE. [Concomitant]
     Active Substance: NIFEDIPINE
  10. INGREZZA [Suspect]
     Active Substance: VALBENAZINE
     Route: 048
     Dates: start: 20170830
  11. SIMVASTATIN. [Concomitant]
     Active Substance: SIMVASTATIN

REACTIONS (5)
  - Retching [Unknown]
  - Paraesthesia [Unknown]
  - Eating disorder symptom [Recovered/Resolved]
  - Influenza [Unknown]
  - Rash [Recovered/Resolved]

NARRATIVE: CASE EVENT DATE: 2017
